FAERS Safety Report 7736743-1 (Version None)
Quarter: 2011Q3

REPORT INFORMATION
  Report Type: 
  Country: None (occurrence: None)
  Receive Date: 20110908
  Receipt Date: 20110831
  Transmission Date: 20111222
  Serious: Yes (Hospitalization, Other)
  Sender: FDA-Public Use
  Company Number: PHHY2011CA28832

PATIENT
  Sex: Female

DRUGS (3)
  1. SANDOSTATIN LAR [Suspect]
     Indication: CARCINOID TUMOUR
     Dosage: 30 MG, EVERY THREE WEEKS
     Route: 030
     Dates: start: 20080401
  2. AFINITOR [Suspect]
     Dosage: 05 MG, UNK
     Route: 048
     Dates: start: 20110415, end: 20110816
  3. AFINITOR [Suspect]
     Indication: CARCINOID TUMOUR
     Dosage: 10 MG, QD
     Route: 048
     Dates: start: 20110307

REACTIONS (14)
  - PRODUCTIVE COUGH [None]
  - FATIGUE [None]
  - CONSTIPATION [None]
  - RASH [None]
  - DIARRHOEA [None]
  - FLATULENCE [None]
  - ANORECTAL DISCOMFORT [None]
  - NOCARDIOSIS [None]
  - ASTHMA [None]
  - WHITE BLOOD CELL COUNT DECREASED [None]
  - FEELING ABNORMAL [None]
  - WHEEZING [None]
  - DYSPNOEA [None]
  - ABSCESS [None]
